FAERS Safety Report 21789876 (Version 15)
Quarter: 2024Q1

REPORT INFORMATION
  Report Type: Spontaneous
  Country: US (occurrence: US)
  Receive Date: 20221228
  Receipt Date: 20240206
  Transmission Date: 20240410
  Serious: Yes (Other)
  Sender: FDA-Public Use
  Company Number: US-PFIZER INC-PV202200131239

PATIENT
  Age: 78 Year
  Sex: Male

DRUGS (7)
  1. BRAFTOVI [Suspect]
     Active Substance: ENCORAFENIB
     Indication: Lung neoplasm malignant
     Dosage: 300 MG, DAILY
     Route: 048
  2. BRAFTOVI [Suspect]
     Active Substance: ENCORAFENIB
     Dosage: 450 MG, 1X/DAY
     Route: 048
  3. BRAFTOVI [Suspect]
     Active Substance: ENCORAFENIB
     Dosage: 450 MG, DAILY
     Route: 048
     Dates: start: 20231117
  4. MEKTOVI [Suspect]
     Active Substance: BINIMETINIB
     Indication: Lung neoplasm malignant
     Dosage: 30 MG, 2X/DAY
     Route: 048
  5. MEKTOVI [Suspect]
     Active Substance: BINIMETINIB
     Dosage: 45 MG, 2X/DAY
     Route: 048
     Dates: start: 20231117
  6. CORTEF [Concomitant]
     Active Substance: HYDROCORTISONE
     Dosage: TAKE 15 MG (3 TABLETS IN THE MORNING) AND TAKE 5MG (1 TABLET) IN THE EVENING
     Dates: start: 20221227
  7. TAPAZOLE [Concomitant]
     Active Substance: METHIMAZOLE
     Dosage: TAKE HALF TABLET ONCE A DAY FOR A TOTAL OF 2.5 MG DAILY
     Dates: start: 20221215

REACTIONS (3)
  - Dementia [Unknown]
  - Product dispensing error [Unknown]
  - Off label use [Unknown]
